FAERS Safety Report 6863159-2 (Version None)
Quarter: 2010Q2

REPORT INFORMATION
  Report Type: 
  Country: None (occurrence: None)
  Receive Date: 20100528
  Receipt Date: 20100212
  Transmission Date: 20101027
  Serious: No
  Sender: FDA-Public Use
  Company Number: 006940

PATIENT
  Age: 20 Year
  Sex: Male

DRUGS (1)
  1. LACOSAMIDE [Suspect]
     Indication: CONVULSION

REACTIONS (3)
  - AGGRESSION [None]
  - AGITATION [None]
  - HOSTILITY [None]
